FAERS Safety Report 6555823-X (Version None)
Quarter: 2010Q1

REPORT INFORMATION
  Report Type: 
  Country: None (occurrence: None)
  Receive Date: 20100125
  Receipt Date: 20100118
  Transmission Date: 20100710
  Serious: Yes (Congenital Anomaly, Other)
  Sender: FDA-Public Use
  Company Number: 2007SP019852

PATIENT
  Age: 1 Month
  Sex: Male
  Weight: 4.21 kg

DRUGS (2)
  1. PEG-INTRON [Suspect]
     Indication: HEPATITIS C
  2. REBETOL [Suspect]
     Indication: HEPATITIS C

REACTIONS (8)
  - CARDIAC MURMUR [None]
  - CYANOSIS [None]
  - CYTOGENETIC ABNORMALITY [None]
  - DRUG EXPOSURE DURING PREGNANCY [None]
  - DYSPHAGIA [None]
  - INFANTILE SPASMS [None]
  - PSYCHOMOTOR SKILLS IMPAIRED [None]
  - TRISOMY 21 [None]
